FAERS Safety Report 5891162-8 (Version None)
Quarter: 2008Q3

REPORT INFORMATION
  Report Type: 
  Country: None (occurrence: None)
  Receive Date: 20080918
  Receipt Date: 20080918
  Transmission Date: 20090109
  Serious: No
  Sender: FDA-Public Use
  Company Number: None

PATIENT
  Age: 37 Year
  Sex: Female
  Weight: 90.7194 kg

DRUGS (1)
  1. BOTOX [Suspect]
     Indication: SKIN WRINKLING
     Dosage: UNKNOWN SQ
     Route: 058
     Dates: start: 20080624, end: 20080624

REACTIONS (14)
  - ANXIETY [None]
  - ASTHENIA [None]
  - DARK CIRCLES UNDER EYES [None]
  - DIZZINESS [None]
  - DRY EYE [None]
  - EUSTACHIAN TUBE DISORDER [None]
  - EYE SWELLING [None]
  - HEADACHE [None]
  - HYPERACUSIS [None]
  - HYPOPHAGIA [None]
  - IMPAIRED SELF-CARE [None]
  - IMPAIRED WORK ABILITY [None]
  - NO THERAPEUTIC RESPONSE [None]
  - PHOTOPHOBIA [None]
